FAERS Safety Report 16299712 (Version 1)
Quarter: 2019Q2

REPORT INFORMATION
  Report Type: Spontaneous
  Country: US (occurrence: US)
  Receive Date: 20190510
  Receipt Date: 20190510
  Transmission Date: 20190711
  Serious: No
  Sender: FDA-Public Use
  Company Number: US-PFIZER INC-2019196118

PATIENT
  Sex: Female

DRUGS (1)
  1. CHANTIX [Suspect]
     Active Substance: VARENICLINE TARTRATE
     Dosage: UNK

REACTIONS (6)
  - Pruritus [Unknown]
  - Wound [Unknown]
  - Rhinalgia [Unknown]
  - Rash papular [Unknown]
  - Dry skin [Unknown]
  - Nasal dryness [Unknown]
